FAERS Safety Report 9669824 (Version 1)
Quarter: 2013Q4

REPORT INFORMATION
  Report Type: Spontaneous
  Country: US (occurrence: US)
  Receive Date: 20131105
  Receipt Date: 20131105
  Transmission Date: 20140711
  Serious: No
  Sender: FDA-Public Use
  Company Number: US-TEVA-441637USA

PATIENT
  Age: 63 Year
  Sex: Male

DRUGS (4)
  1. AZILECT [Suspect]
     Indication: PARKINSON^S DISEASE
     Dates: start: 201310
  2. BABY ASPIRIN [Concomitant]
  3. ANTABUSE [Concomitant]
     Indication: ALCOHOL ABUSE
  4. PRILOSEC [Concomitant]
     Indication: DYSPEPSIA
     Dosage: DOSAGE AMOUNT UNSPECIFIED

REACTIONS (5)
  - Memory impairment [Not Recovered/Not Resolved]
  - Hypochondriasis [Not Recovered/Not Resolved]
  - Dyspepsia [Not Recovered/Not Resolved]
  - Gait disturbance [Not Recovered/Not Resolved]
  - Tremor [Not Recovered/Not Resolved]
